FAERS Safety Report 10402916 (Version 9)
Quarter: 2016Q1

REPORT INFORMATION
  Report Type: Report from Study
  Country: US (occurrence: US)
  Receive Date: 20140822
  Receipt Date: 20160212
  Transmission Date: 20160525
  Serious: Yes (Hospitalization, Other)
  Sender: FDA-Public Use
  Company Number: US-SA-2014SA111432

PATIENT
  Age: 51 Year
  Sex: Female

DRUGS (4)
  1. DOXYCYCLINE. [Concomitant]
     Active Substance: DOXYCYCLINE
  2. AUBAGIO [Suspect]
     Active Substance: TERIFLUNOMIDE
     Indication: MULTIPLE SCLEROSIS
     Route: 048
     Dates: start: 201407, end: 20140824
  3. AUBAGIO [Suspect]
     Active Substance: TERIFLUNOMIDE
     Indication: MULTIPLE SCLEROSIS
     Route: 048
  4. MODAFINIL. [Concomitant]
     Active Substance: MODAFINIL
     Dates: start: 2015

REACTIONS (18)
  - Hypertension [Unknown]
  - Hair texture abnormal [Unknown]
  - Arthropathy [Not Recovered/Not Resolved]
  - Arthralgia [Not Recovered/Not Resolved]
  - Nausea [Unknown]
  - Spinal cord injury cervical [Unknown]
  - Balance disorder [Unknown]
  - Trigger finger [Not Recovered/Not Resolved]
  - Dyspepsia [Unknown]
  - Memory impairment [Unknown]
  - Peripheral coldness [Not Recovered/Not Resolved]
  - Pain in extremity [Not Recovered/Not Resolved]
  - Hypoaesthesia [Not Recovered/Not Resolved]
  - Hypoaesthesia [Unknown]
  - Alopecia [Unknown]
  - Abdominal discomfort [Unknown]
  - Visual impairment [Unknown]
  - Myalgia [Unknown]

NARRATIVE: CASE EVENT DATE: 201407
